FAERS Safety Report 19659661 (Version 2)
Quarter: 2021Q3

REPORT INFORMATION
  Report Type: Report from Study
  Country: CA (occurrence: CA)
  Receive Date: 20210804
  Receipt Date: 20210812
  Transmission Date: 20211014
  Serious: Yes (Other)
  Sender: FDA-Public Use
  Company Number: CA-JNJFOC-20210758297

PATIENT
  Age: 63 Year
  Sex: Female
  Weight: 61.29 kg

DRUGS (1)
  1. SIMPONI [Suspect]
     Active Substance: GOLIMUMAB
     Indication: RHEUMATOID ARTHRITIS
     Route: 058
     Dates: start: 20200902

REACTIONS (8)
  - Hyperglycaemia [Recovering/Resolving]
  - Dehydration [Recovering/Resolving]
  - Cystitis [Unknown]
  - Loss of consciousness [Recovering/Resolving]
  - Lower limb fracture [Unknown]
  - Contusion [Not Recovered/Not Resolved]
  - Head injury [Unknown]
  - Fall [Recovering/Resolving]

NARRATIVE: CASE EVENT DATE: 202107
